FAERS Safety Report 6877096-0 (Version None)
Quarter: 2010Q3

REPORT INFORMATION
  Report Type: 
  Country: None (occurrence: None)
  Receive Date: 20100727
  Receipt Date: 20100713
  Transmission Date: 20110219
  Serious: Yes (Hospitalization)
  Sender: FDA-Public Use
  Company Number: GB-WATSON-2010-09624

PATIENT
  Age: 97 Year
  Sex: Male

DRUGS (4)
  1. LAMOTRIGINE [Suspect]
     Indication: EPILEPSY
     Dosage: 75 MG, UNKNOWN
     Route: 048
     Dates: start: 20100514, end: 20100621
  2. ASPIRIN [Concomitant]
     Indication: CEREBROVASCULAR ACCIDENT
     Dosage: 75 MG, DAILY
     Route: 065
     Dates: start: 20100510
  3. LANSOPRAZOLE [Concomitant]
     Indication: GASTROINTESTINAL HAEMORRHAGE
     Dosage: 30 MG, DAILY
     Route: 065
     Dates: start: 20100519
  4. SIMVASTATIN [Concomitant]
     Indication: CEREBROVASCULAR ACCIDENT
     Dosage: 40 MG, DAILY
     Route: 065
     Dates: start: 20100520, end: 20100618

REACTIONS (3)
  - DEPRESSED LEVEL OF CONSCIOUSNESS [None]
  - ENCEPHALOPATHY [None]
  - MYOCLONUS [None]
